FAERS Safety Report 8082264-9 (Version None)
Quarter: 2012Q1

REPORT INFORMATION
  Report Type: 
  Country: None (occurrence: None)
  Receive Date: 20120127
  Receipt Date: 20110212
  Transmission Date: 20120608
  Serious: Yes (Other)
  Sender: FDA-Public Use
  Company Number: US-ABBOTT-11P-163-0705407-00

PATIENT
  Sex: Male
  Weight: 79.45 kg

DRUGS (1)
  1. HUMIRA [Suspect]
     Indication: PSORIASIS
     Route: 058
     Dates: start: 20080101, end: 20101203

REACTIONS (5)
  - PSORIASIS [None]
  - MORTON'S NEUROMA [None]
  - NEURALGIA [None]
  - WOUND DEHISCENCE [None]
  - WOUND HAEMORRHAGE [None]
